FAERS Safety Report 9920205 (Version 1)
Quarter: 2014Q1

REPORT INFORMATION
  Report Type: Spontaneous
  Country: GB (occurrence: GB)
  Receive Date: 20140224
  Receipt Date: 20140224
  Transmission Date: 20141002
  Serious: Yes (Other)
  Sender: FDA-Public Use
  Company Number: PHHY2014GB019081

PATIENT
  Age: 28 Year
  Sex: Female

DRUGS (7)
  1. SYNTOCINON [Suspect]
  2. AMOXICILLIN [Suspect]
     Indication: URINARY TRACT INFECTION
  3. MORPHINE [Suspect]
     Indication: ABDOMINAL PAIN
  4. PARACETAMOL [Suspect]
     Indication: ABDOMINAL PAIN
  5. ENTONOX [Suspect]
     Indication: ABDOMINAL PAIN
  6. PETHIDINE [Suspect]
     Indication: ABDOMINAL PAIN
  7. CEFUROXIN [Suspect]
     Dosage: 750 MG, UNK
     Route: 042

REACTIONS (10)
  - Venous thrombosis [Recovering/Resolving]
  - Back pain [Recovering/Resolving]
  - Abdominal pain [Recovering/Resolving]
  - Tenderness [Recovering/Resolving]
  - Costovertebral angle tenderness [Recovering/Resolving]
  - Ischaemia [Recovering/Resolving]
  - Vomiting [Recovering/Resolving]
  - Malaise [Recovering/Resolving]
  - Haemoglobin decreased [Unknown]
  - Maternal exposure during pregnancy [Unknown]
